FAERS Safety Report 18537923 (Version 1)
Quarter: 2020Q4

REPORT INFORMATION
  Report Type: Report from Study
  Country: None (occurrence: US)
  Receive Date: 20201124
  Receipt Date: 20201124
  Transmission Date: 20210114
  Serious: Yes (Hospitalization)
  Sender: FDA-Public Use
  Company Number: US-ABBVIE-20K-163-3566968-00

PATIENT
  Sex: Female

DRUGS (1)
  1. HUMIRA [Suspect]
     Active Substance: ADALIMUMAB
     Indication: CROHN^S DISEASE
     Route: 058

REACTIONS (6)
  - Memory impairment [Not Recovered/Not Resolved]
  - Thrombosis [Unknown]
  - Swollen tongue [Unknown]
  - Decreased appetite [Unknown]
  - Tongue disorder [Unknown]
  - SARS-CoV-2 test positive [Recovering/Resolving]

NARRATIVE: CASE EVENT DATE: 2020
